FAERS Safety Report 9099879 (Version 1)
Quarter: 2013Q1

REPORT INFORMATION
  Report Type: Spontaneous
  Country: US (occurrence: US)
  Receive Date: 20130214
  Receipt Date: 20130214
  Transmission Date: 20140127
  Serious: No
  Sender: FDA-Public Use
  Company Number: US-009507513-1302USA003639

PATIENT
  Sex: Male

DRUGS (4)
  1. JANUVIA [Suspect]
     Indication: TYPE 2 DIABETES MELLITUS
     Dosage: 125 MG, PILL PER DAY IN THE MORNING
     Route: 048
     Dates: start: 201208
  2. LOSARTAN POTASSIUM [Concomitant]
  3. TAMSULOSIN HYDROCHLORIDE [Concomitant]
  4. LIPITOR [Concomitant]

REACTIONS (7)
  - Cough [Unknown]
  - Hypersensitivity [Unknown]
  - Increased upper airway secretion [Unknown]
  - Sneezing [Unknown]
  - Lacrimation increased [Unknown]
  - Rhinorrhoea [Unknown]
  - Oropharyngeal pain [Unknown]
